FAERS Safety Report 6913151-4 (Version None)
Quarter: 2010Q3

REPORT INFORMATION
  Report Type: 
  Country: None (occurrence: None)
  Receive Date: 20100806
  Receipt Date: 20090910
  Transmission Date: 20110219
  Serious: No
  Sender: FDA-Public Use
  Company Number: US-PFIZER INC-2009205198

PATIENT
  Sex: Female
  Weight: 83 kg

DRUGS (3)
  1. DETROL LA [Suspect]
     Indication: MICTURITION URGENCY
     Dates: start: 20090424
  2. LISINOPRIL [Concomitant]
     Dosage: UNK
  3. SIMVASTATIN [Concomitant]

REACTIONS (1)
  - TINNITUS [None]
